FAERS Safety Report 19524475 (Version 2)
Quarter: 2021Q3

REPORT INFORMATION
  Report Type: Spontaneous
  Country: US (occurrence: US)
  Receive Date: 20210712
  Receipt Date: 20210901
  Transmission Date: 20211014
  Serious: Yes (Death, Hospitalization, Other)
  Sender: FDA-Public Use
  Company Number: US-GILEAD-2021-0540162

PATIENT
  Age: 70 Year
  Sex: Male
  Weight: 47 kg

DRUGS (12)
  1. YESCARTA [Suspect]
     Active Substance: AXICABTAGENE CILOLEUCEL
     Indication: DIFFUSE LARGE B-CELL LYMPHOMA
     Dosage: 68 ML, ONCE
     Route: 042
     Dates: start: 20210614, end: 20210614
  2. XARELTO [Concomitant]
     Active Substance: RIVAROXABAN
  3. LORAZEPAM. [Concomitant]
     Active Substance: LORAZEPAM
  4. NORVASC [Concomitant]
     Active Substance: AMLODIPINE BESYLATE
  5. POTASSIUM CHLORIDE. [Concomitant]
     Active Substance: POTASSIUM CHLORIDE
  6. COZAAR [Concomitant]
     Active Substance: LOSARTAN POTASSIUM
  7. VITAMIN D3 [Concomitant]
     Active Substance: CHOLECALCIFEROL
  8. FLUDARABINE [Concomitant]
     Active Substance: FLUDARABINE PHOSPHATE
  9. CYCLOPHOSPHAMIDE. [Concomitant]
     Active Substance: CYCLOPHOSPHAMIDE
  10. LIPITOR [Concomitant]
     Active Substance: ATORVASTATIN CALCIUM
  11. ACYCLOVIR [ACICLOVIR] [Concomitant]
     Active Substance: ACYCLOVIR
  12. JANUMET XR [Concomitant]
     Active Substance: METFORMIN HYDROCHLORIDE\SITAGLIPTIN PHOSPHATE

REACTIONS (13)
  - Diffuse large B-cell lymphoma [Fatal]
  - Electrolyte imbalance [Unknown]
  - Febrile neutropenia [Unknown]
  - Diarrhoea [Unknown]
  - Septic shock [Fatal]
  - Atrial fibrillation [Recovered/Resolved]
  - Cerebrovascular accident [Unknown]
  - Neurotoxicity [Fatal]
  - Cytomegalovirus infection reactivation [Unknown]
  - Pancytopenia [Unknown]
  - Colitis ischaemic [Unknown]
  - Disseminated intravascular coagulation [Not Recovered/Not Resolved]
  - Cytokine release syndrome [Unknown]

NARRATIVE: CASE EVENT DATE: 2021
